FAERS Safety Report 15351750 (Version 2)
Quarter: 2020Q3

REPORT INFORMATION
  Report Type: Report from Study
  Country: US (occurrence: US)
  Receive Date: 20180905
  Receipt Date: 20200731
  Transmission Date: 20201102
  Serious: Yes (Other)
  Sender: FDA-Public Use
  Company Number: US-SA-2018SA244884

PATIENT

DRUGS (3)
  1. ALEMTUZUMAB [Suspect]
     Active Substance: ALEMTUZUMAB
     Indication: MULTIPLE SCLEROSIS
     Dosage: 12 MG, QD
     Route: 041
     Dates: start: 20170306, end: 20170308
  2. OCREVUS [Suspect]
     Active Substance: OCRELIZUMAB
     Dosage: UNK
     Dates: start: 201802
  3. ALEMTUZUMAB [Suspect]
     Active Substance: ALEMTUZUMAB
     Dosage: 12 MG, QD
     Route: 041
     Dates: start: 20160222, end: 20160226

REACTIONS (8)
  - Hemiplegia [Unknown]
  - Sensory loss [Recovered/Resolved]
  - Headache [Not Recovered/Not Resolved]
  - Mobility decreased [Unknown]
  - Hemiparesis [Unknown]
  - Asthenia [Unknown]
  - Sinusitis [Unknown]
  - Fall [Unknown]

NARRATIVE: CASE EVENT DATE: 2018
